FAERS Safety Report 25083325 (Version 1)
Quarter: 2025Q1

REPORT INFORMATION
  Report Type: Report from Study
  Country: FR (occurrence: FR)
  Receive Date: 20250317
  Receipt Date: 20250317
  Transmission Date: 20250408
  Serious: Yes (Other)
  Sender: ROCHE
  Company Number: None

PATIENT
  Age: 12 Year
  Sex: Female

DRUGS (10)
  1. MYCOPHENOLATE MOFETIL [Suspect]
     Active Substance: MYCOPHENOLATE MOFETIL
     Indication: Prophylaxis against transplant rejection
     Route: 065
  2. PREDNISONE [Suspect]
     Active Substance: PREDNISONE
     Indication: Prophylaxis against transplant rejection
     Route: 065
  3. TACROLIMUS [Suspect]
     Active Substance: TACROLIMUS
     Indication: Prophylaxis against transplant rejection
     Route: 065
  4. METHYLPREDNISOLONE [Suspect]
     Active Substance: METHYLPREDNISOLONE
     Indication: Pulmonary fibrosis
     Route: 065
  5. SULFAMETHOXAZOLE\TRIMETHOPRIM [Concomitant]
     Active Substance: SULFAMETHOXAZOLE\TRIMETHOPRIM
     Indication: Antibiotic prophylaxis
     Route: 065
  6. VALGANCICLOVIR [Concomitant]
     Active Substance: VALGANCICLOVIR
     Indication: Antiviral prophylaxis
     Route: 065
  7. ACYCLOVIR [Concomitant]
     Active Substance: ACYCLOVIR
     Indication: Varicella zoster virus infection
     Route: 042
  8. RUXOLITINIB [Concomitant]
     Active Substance: RUXOLITINIB
     Indication: STING-associated vasculopathy with onset in infancy
     Route: 048
  9. TINZAPARIN [Concomitant]
     Active Substance: TINZAPARIN
     Indication: Venous thrombosis limb
     Route: 065
  10. AMPHOTERICIN B [Concomitant]
     Active Substance: AMPHOTERICIN B
     Indication: Antifungal prophylaxis
     Route: 048

REACTIONS (11)
  - Osteonecrosis [Unknown]
  - Polyomavirus-associated nephropathy [Unknown]
  - Chronic kidney disease [Unknown]
  - Skin ulcer [Unknown]
  - Haemoptysis [Unknown]
  - Pneumonia bacterial [Unknown]
  - Staphylococcal infection [Unknown]
  - Citrobacter infection [Unknown]
  - Haemophilus infection [Unknown]
  - Drug ineffective [Unknown]
  - Varicella zoster virus infection [Not Recovered/Not Resolved]
